FAERS Safety Report 12502794 (Version 1)
Quarter: 2016Q2

REPORT INFORMATION
  Report Type: Report from Study
  Country: US (occurrence: US)
  Receive Date: 20160628
  Receipt Date: 20160628
  Transmission Date: 20160815
  Serious: Yes (Hospitalization, Other)
  Sender: FDA-Public Use
  Company Number: US-ALEXION PHARMACEUTICALS INC-A201604698

PATIENT
  Sex: Female

DRUGS (1)
  1. SOLIRIS [Suspect]
     Active Substance: ECULIZUMAB
     Indication: HAEMOLYTIC URAEMIC SYNDROME
     Route: 042

REACTIONS (4)
  - Headache [Not Recovered/Not Resolved]
  - Nausea [Unknown]
  - Tachycardia [Unknown]
  - Malignant hypertension [Not Recovered/Not Resolved]

NARRATIVE: CASE EVENT DATE: 20160620
